FAERS Safety Report 22248432 (Version 1)
Quarter: 2023Q2

REPORT INFORMATION
  Report Type: Spontaneous
  Country: US (occurrence: None)
  Receive Date: 20230425
  Receipt Date: 20230425
  Transmission Date: 20230722
  Serious: Yes (Other)
  Sender: FDA-Public Use
  Company Number: US-ROCHE-3240213

PATIENT
  Sex: Male

DRUGS (1)
  1. OCREVUS [Suspect]
     Active Substance: OCRELIZUMAB
     Indication: Product used for unknown indication
     Route: 065

REACTIONS (8)
  - Chest discomfort [Unknown]
  - Ear pain [Unknown]
  - Abdominal distension [Unknown]
  - Influenza like illness [Unknown]
  - Pyrexia [Unknown]
  - Weight increased [Unknown]
  - Migraine [Unknown]
  - Myocardial infarction [Unknown]
